FAERS Safety Report 7292835-5 (Version None)
Quarter: 2011Q1

REPORT INFORMATION
  Report Type: 
  Country: None (occurrence: None)
  Receive Date: 20110215
  Receipt Date: 20110209
  Transmission Date: 20110831
  Serious: No
  Sender: FDA-Public Use
  Company Number: US-B.I. PHARMACEUTICALS,INC./RIDGEFIELD-2010-BP-13018BP

PATIENT
  Sex: Male

DRUGS (7)
  1. FLOMAX [Suspect]
     Indication: PROSTATITIS
  2. PLAVIX [Concomitant]
     Indication: ANGIOPLASTY
     Dosage: 75 MG
  3. ATENOLOL [Concomitant]
     Indication: HEART RATE INCREASED
     Dosage: 100 MG
  4. ZOCOR [Concomitant]
     Indication: BLOOD CHOLESTEROL INCREASED
  5. FLOMAX [Suspect]
     Indication: BENIGN PROSTATIC HYPERPLASIA
     Dosage: 0.4 MG
     Route: 048
     Dates: start: 20090101, end: 20101119
  6. PLAVIX [Concomitant]
     Indication: STENT PLACEMENT
  7. BENAZAPRIL [Concomitant]
     Indication: HYPERTENSION

REACTIONS (2)
  - NIPPLE PAIN [None]
  - GYNAECOMASTIA [None]
